FAERS Safety Report 14598839 (Version 1)
Quarter: 2018Q1

REPORT INFORMATION
  Report Type: Spontaneous
  Country: US (occurrence: US)
  Receive Date: 20180305
  Receipt Date: 20180305
  Transmission Date: 20180509
  Serious: No
  Sender: FDA-Public Use
  Company Number: US-BAYER-2018-042565

PATIENT
  Age: 59 Year
  Sex: Male

DRUGS (1)
  1. BETASERON [Suspect]
     Active Substance: INTERFERON BETA-1B
     Indication: MULTIPLE SCLEROSIS
     Dosage: 1 ML, UNK

REACTIONS (5)
  - Pharyngitis streptococcal [None]
  - Upper respiratory tract infection [None]
  - Bronchitis [None]
  - Depression [None]
  - Sinusitis [None]

NARRATIVE: CASE EVENT DATE: 201712
